FAERS Safety Report 9463737 (Version 2)
Quarter: 2013Q3

REPORT INFORMATION
  Report Type: Spontaneous
  Country: IN (occurrence: IN)
  Receive Date: 20130819
  Receipt Date: 20130826
  Transmission Date: 20140515
  Serious: Yes (Other)
  Sender: FDA-Public Use
  Company Number: IN-RANBAXY-2013RR-72180

PATIENT
  Age: 58 Year
  Sex: Male

DRUGS (9)
  1. AMLODIPINE [Suspect]
     Indication: HYPERTENSION
     Dosage: 5 MG, QD
     Route: 065
  2. GLYCOPYRROLATE [Concomitant]
     Indication: PREMEDICATION
     Dosage: 0.2 MG, UNK
     Route: 065
  3. RANITIDINE [Concomitant]
     Indication: PREMEDICATION
     Dosage: 50 MG, UNK
     Route: 065
  4. ONDANSETRON [Concomitant]
     Indication: PREMEDICATION
     Dosage: 4 MG, UNK
     Route: 065
  5. FENTANYL [Concomitant]
     Indication: PREMEDICATION
     Dosage: 3 ?G/KG, UNK
     Route: 042
  6. THIOPENTAL SODIUM [Concomitant]
     Indication: INDUCTION OF ANAESTHESIA
     Dosage: 7 MG/KG, UNK
     Route: 065
  7. SUXAMETHONIUM CHLORIDE [SUCCINYLCHOLINE CHLORIDE] [Concomitant]
     Indication: INDUCTION OF ANAESTHESIA
     Dosage: 2 MG/KG, UNK
     Route: 065
  8. ISOFLURANE [Concomitant]
     Indication: MAINTENANCE OF ANAESTHESIA
     Dosage: UNK
     Route: 065
  9. ATRACURIUM BESILATE [Concomitant]
     Indication: MAINTENANCE OF ANAESTHESIA
     Dosage: UNK
     Route: 065

REACTIONS (1)
  - Procedural hypotension [Recovered/Resolved]
